FAERS Safety Report 4936916-7 (Version None)
Quarter: 2006Q1

REPORT INFORMATION
  Report Type: 
  Country: None (occurrence: None)
  Receive Date: 20060307
  Receipt Date: 20050714
  Transmission Date: 20060701
  Serious: Yes (Death)
  Sender: FDA-Public Use
  Company Number: US-MERCK-0507USA02048

PATIENT
  Age: 56 Year
  Sex: Male
  Weight: 86 kg

DRUGS (2)
  1. VIOXX [Suspect]
     Indication: INFLAMMATION
     Route: 048
     Dates: start: 20010101, end: 20040301
  2. VIOXX [Suspect]
     Indication: PAIN
     Route: 048
     Dates: start: 20010101, end: 20040301

REACTIONS (6)
  - ADVERSE EVENT [None]
  - CARDIAC ARREST [None]
  - FIBULA FRACTURE [None]
  - FRACTURE NONUNION [None]
  - NERVE COMPRESSION [None]
  - TIBIA FRACTURE [None]
